FAERS Safety Report 18616903 (Version 1)
Quarter: 2020Q4

REPORT INFORMATION
  Report Type: Spontaneous
  Country: US (occurrence: US)
  Receive Date: 20201215
  Receipt Date: 20201215
  Transmission Date: 20210114
  Serious: No
  Sender: FDA-Public Use
  Company Number: US-AUROBINDO-AUR-APL-2020-007928

PATIENT
  Sex: Female

DRUGS (1)
  1. MIRTAZAPINE TABLETS 15 MG [Suspect]
     Active Substance: MIRTAZAPINE
     Indication: DEPRESSION
     Dosage: 01 DOSAGE FORM, ONCE A DAY, AT BED TIME
     Route: 065

REACTIONS (4)
  - Abdominal pain upper [Unknown]
  - Weight increased [Unknown]
  - Feeling abnormal [Unknown]
  - Hyperphagia [Unknown]
